FAERS Safety Report 8335331-6 (Version None)
Quarter: 2012Q2

REPORT INFORMATION
  Report Type: 
  Country: None (occurrence: None)
  Receive Date: 20120503
  Receipt Date: 20120424
  Transmission Date: 20120825
  Serious: Yes (Hospitalization, Other)
  Sender: FDA-Public Use
  Company Number: CH-PFIZER INC-2012106585

PATIENT
  Age: 63 Year
  Sex: Female

DRUGS (10)
  1. LERCANIDIPINE [Concomitant]
     Dosage: UNK
  2. LANTUS [Concomitant]
     Dosage: UNK
  3. GLUCOPHAGE [Concomitant]
     Dosage: UNK
  4. DIAMICRON [Concomitant]
     Dosage: UNK
  5. RASILEZ [Suspect]
     Dosage: 150 MG, DAILY
     Route: 048
     Dates: end: 20120213
  6. RAMIPRIL [Suspect]
     Dosage: 10 MG, DAILY
     Route: 048
     Dates: end: 20120213
  7. ASPIRIN [Suspect]
     Dosage: 100 MG, DAILY
     Route: 048
     Dates: end: 20120213
  8. METOPROLOL TARTRATE AND HYDROCHLOROTHIAZIDE [Concomitant]
     Dosage: UNK
  9. MAGNESIUM DIASPORAL [Concomitant]
     Dosage: UNK
  10. TORASEMIDE [Concomitant]
     Dosage: UNK

REACTIONS (5)
  - RENAL FAILURE ACUTE [None]
  - DUODENAL ULCER [None]
  - GASTROINTESTINAL HAEMORRHAGE [None]
  - ANAEMIA [None]
  - HYPERKALAEMIA [None]
